FAERS Safety Report 8985351 (Version 2)
Quarter: 2013Q1

REPORT INFORMATION
  Report Type: Spontaneous
  Country: US (occurrence: US)
  Receive Date: 20121226
  Receipt Date: 20130227
  Transmission Date: 20140127
  Serious: Yes (Other)
  Sender: FDA-Public Use
  Company Number: US-PFIZER INC-2012326906

PATIENT
  Age: 80 Year
  Sex: Male
  Weight: 99.8 kg

DRUGS (14)
  1. LYRICA [Suspect]
     Indication: PAIN IN EXTREMITY
     Dosage: 100 MG, 3X/DAY
  2. LYRICA [Suspect]
     Indication: POLYNEUROPATHY
  3. LYRICA [Suspect]
     Indication: HYPOAESTHESIA
  4. TRIAZOLAM [Suspect]
     Indication: SLEEP DISORDER
     Dosage: 0.25-0.5MG DAILY
  5. ALBUTEROL [Concomitant]
     Indication: ASTHMA
     Dosage: UNK, AS NEEDED
  6. GLIMEPIRIDE [Concomitant]
     Indication: DIABETES MELLITUS
     Dosage: 2 MG, 2X/DAY
  7. LISINOPRIL [Concomitant]
     Dosage: 40 MG, 1X/DAY
  8. NORVASC [Concomitant]
     Dosage: 10 MG, 1X/DAY
  9. PRAVACHOL [Concomitant]
     Dosage: 40 MG, 2X/DAY
  10. SEROQUEL [Concomitant]
     Indication: DEPRESSION
     Dosage: 25 MG, 1X/DAY
  11. ACETYLSALICYLIC ACID [Concomitant]
     Dosage: 81 MG, 2X/DAY
  12. PAXIL [Concomitant]
     Dosage: 10 MG, 1X/DAY
  13. PRILOSEC [Concomitant]
     Indication: ANTICOAGULANT THERAPY
     Dosage: 20 MG, 1X/DAY
  14. PERSANTIN [Concomitant]
     Indication: ANTICOAGULANT THERAPY
     Dosage: 75 MG, 2X/DAY

REACTIONS (2)
  - Cerebrovascular accident [Unknown]
  - Hypersomnia [Not Recovered/Not Resolved]
